FAERS Safety Report 12360460 (Version 2)
Quarter: 2016Q2

REPORT INFORMATION
  Report Type: Report from Study
  Country: US (occurrence: US)
  Receive Date: 20160512
  Receipt Date: 20160605
  Transmission Date: 20160815
  Serious: Yes (Death, Hospitalization, Other)
  Sender: FDA-Public Use
  Company Number: US-JNJFOC-20141219372

PATIENT
  Sex: Female
  Weight: 49.9 kg

DRUGS (6)
  1. XARELTO [Suspect]
     Active Substance: RIVAROXABAN
     Indication: CEREBROVASCULAR ACCIDENT PROPHYLAXIS
     Route: 048
  2. VITAMIN D [Concomitant]
     Active Substance: CHOLECALCIFEROL
     Route: 065
  3. VALIUM [Concomitant]
     Active Substance: DIAZEPAM
     Route: 065
  4. CHONDROITIN [Concomitant]
     Active Substance: CHONDROITIN
     Route: 065
  5. METOPROLOL. [Concomitant]
     Active Substance: METOPROLOL
     Indication: HEART RATE
     Route: 065
  6. XARELTO [Suspect]
     Active Substance: RIVAROXABAN
     Indication: ATRIAL FIBRILLATION
     Route: 048

REACTIONS (16)
  - Death [Fatal]
  - Biliary colic [Unknown]
  - Blindness [Unknown]
  - Cerebral haemorrhage [Unknown]
  - Weight decreased [Not Recovered/Not Resolved]
  - Hallucination [Unknown]
  - Vitreous floaters [Unknown]
  - Skin disorder [Not Recovered/Not Resolved]
  - Fall [Unknown]
  - Drug dose omission [Unknown]
  - Vascular dementia [Unknown]
  - Abasia [Unknown]
  - Incorrect dose administered [Unknown]
  - Spinal compression fracture [Unknown]
  - Extra dose administered [Unknown]
  - Decreased appetite [Unknown]

NARRATIVE: CASE EVENT DATE: 2012
